FAERS Safety Report 6785979-5 (Version None)
Quarter: 2010Q2

REPORT INFORMATION
  Report Type: 
  Country: None (occurrence: None)
  Receive Date: 20100623
  Receipt Date: 20100614
  Transmission Date: 20101027
  Serious: Yes (Other)
  Sender: FDA-Public Use
  Company Number: NL-BAXTER-2010BH015905

PATIENT
  Age: 41 Year
  Sex: Female

DRUGS (17)
  1. GAMMAGARD LIQUID [Suspect]
     Indication: MULTIPLE SCLEROSIS
     Route: 042
     Dates: start: 20100611, end: 20100611
  2. GAMMAGARD LIQUID [Suspect]
     Indication: OFF LABEL USE
     Route: 042
     Dates: start: 20100611, end: 20100611
  3. GAMMAGARD LIQUID [Suspect]
     Route: 042
     Dates: start: 20100611, end: 20100611
  4. GAMMAGARD LIQUID [Suspect]
     Route: 042
     Dates: start: 20100611, end: 20100611
  5. BACLOFEN [Concomitant]
  6. RIVOTRIL [Concomitant]
  7. MOVICOLON [Concomitant]
  8. DUSPATAL [Concomitant]
  9. UBRETID [Concomitant]
  10. AMITRIPTYLINE [Concomitant]
  11. SIMVASTATIN [Concomitant]
  12. ESOMEPRAZOLE [Concomitant]
  13. PARACETAMOL [Concomitant]
  14. CELEBREX [Concomitant]
  15. TIZANIDINE [Concomitant]
  16. ANTIDEPRESSANTS [Concomitant]
  17. PANTOZOL [Concomitant]

REACTIONS (5)
  - BACK PAIN [None]
  - HEADACHE [None]
  - INFLUENZA LIKE ILLNESS [None]
  - NAUSEA [None]
  - PARAESTHESIA [None]
